FAERS Safety Report 9385827 (Version 1)
Quarter: 2013Q3

REPORT INFORMATION
  Report Type: Spontaneous
  Country: FR (occurrence: FR)
  Receive Date: 20130705
  Receipt Date: 20130705
  Transmission Date: 20140515
  Serious: Yes (Other)
  Sender: FDA-Public Use
  Company Number: FR-UCBSA-090935

PATIENT
  Age: 18 Year
  Sex: Male

DRUGS (1)
  1. QUASYM LP [Suspect]
     Dosage: UNSPECIFIED DOSE
     Route: 048

REACTIONS (1)
  - Loss of consciousness [Unknown]
